FAERS Safety Report 7500770-X (Version None)
Quarter: 2011Q2

REPORT INFORMATION
  Report Type: 
  Country: None (occurrence: None)
  Receive Date: 20110524
  Receipt Date: 20110517
  Transmission Date: 20111010
  Serious: Yes (Death, Other)
  Sender: FDA-Public Use
  Company Number: PHHY2011MX42867

PATIENT
  Age: 38 Year
  Sex: Male

DRUGS (5)
  1. CYCLOPHOSPHAMIDE [Suspect]
     Indication: STEM CELL TRANSPLANT
     Dosage: 120 MG/KG
  2. METHYLPREDNISOLONE [Suspect]
     Indication: STEM CELL TRANSPLANT
  3. CYCLOSPORINE [Suspect]
     Indication: STEM CELL TRANSPLANT
  4. METHYLPREDNISOLONE [Suspect]
     Indication: IMMUNOSUPPRESSION
  5. GLOBULIN ANTI THYMOCYTE [Concomitant]
     Dosage: 30 MG/KG

REACTIONS (10)
  - SCROTAL OEDEMA [None]
  - NECROTISING FASCIITIS [None]
  - PANCYTOPENIA [None]
  - HYPERGLYCAEMIA [None]
  - PSEUDOMONAL SEPSIS [None]
  - PYREXIA [None]
  - ENCEPHALOPATHY [None]
  - OEDEMA PERIPHERAL [None]
  - LIVER FUNCTION TEST ABNORMAL [None]
  - SCROTAL ERYTHEMA [None]
